FAERS Safety Report 24084687 (Version 1)
Quarter: 2024Q3

REPORT INFORMATION
  Report Type: Spontaneous
  Country: DE (occurrence: None)
  Receive Date: 20240712
  Receipt Date: 20240712
  Transmission Date: 20241017
  Serious: Yes (Hospitalization, Disabling)
  Sender: ASTRAZENECA
  Company Number: 2024A159085

PATIENT
  Age: 75 Year
  Sex: Male
  Weight: 65 kg

DRUGS (3)
  1. ROSUVASTATIN [Suspect]
     Active Substance: ROSUVASTATIN
     Indication: Hypercholesterolaemia
     Dosage: 5 MILLIGRAM, 1/DAY
     Route: 048
  2. PANTOPRAZOLE [Concomitant]
     Active Substance: PANTOPRAZOLE
     Dosage: 40 MILLIGRAM, 2/DAY
     Route: 048
  3. METFORMIN\SITAGLIPTIN [Concomitant]
     Active Substance: METFORMIN\SITAGLIPTIN
     Dosage: 1 DOSAGE FORM, EVERY 12 HRS
     Route: 048

REACTIONS (1)
  - Tendon rupture [Not Recovered/Not Resolved]

NARRATIVE: CASE EVENT DATE: 20240513
